FAERS Safety Report 10345909 (Version 1)
Quarter: 2014Q3

REPORT INFORMATION
  Report Type: Spontaneous
  Country: CH (occurrence: CH)
  Receive Date: 20140728
  Receipt Date: 20140728
  Transmission Date: 20150326
  Serious: Yes (Hospitalization)
  Sender: FDA-Public Use
  Company Number: CH-TEVA-494994ISR

PATIENT
  Age: 30 Year
  Sex: Male

DRUGS (6)
  1. FLUOXETIN-MEPHA [Interacting]
     Active Substance: FLUOXETINE HYDROCHLORIDE
     Dosage: 80 MILLIGRAM DAILY;
     Route: 048
     Dates: start: 2006, end: 2014
  2. WELLBUTRIN XR RETARD [Interacting]
     Active Substance: BUPROPION HYDROCHLORIDE
     Indication: DEPRESSION
     Dosage: 450 MILLIGRAM DAILY; CONTINUING
     Route: 048
     Dates: start: 2006
  3. FLUOXETIN-MEPHA [Suspect]
     Active Substance: FLUOXETINE HYDROCHLORIDE
     Indication: DEPRESSION
     Route: 048
     Dates: start: 2014
  4. URBANYL [Interacting]
     Active Substance: CLOBAZAM
     Indication: EPILEPSY
     Route: 048
  5. NORTRILEN [Interacting]
     Active Substance: NORTRIPTYLINE
     Indication: DEPRESSION
     Dosage: 150 MILLIGRAM DAILY; CONTINUING
     Route: 048
     Dates: start: 2006
  6. LAMICTAL [Interacting]
     Active Substance: LAMOTRIGINE
     Indication: EPILEPSY
     Route: 048
     Dates: start: 20140305

REACTIONS (2)
  - Epilepsy [Recovered/Resolved]
  - Drug interaction [Unknown]

NARRATIVE: CASE EVENT DATE: 20140530
